FAERS Safety Report 4673631-1 (Version None)
Quarter: 2005Q2

REPORT INFORMATION
  Report Type: 
  Country: None (occurrence: None)
  Receive Date: 20050525
  Receipt Date: 20041108
  Transmission Date: 20051028
  Serious: Yes (Hospitalization)
  Sender: FDA-Public Use
  Company Number: 2004AP05713

PATIENT
  Sex: Female

DRUGS (2)
  1. NOLVADEX [Suspect]
     Indication: BREAST CANCER
     Route: 048
     Dates: start: 20030101, end: 20041108
  2. ZOLADEX [Suspect]
     Indication: BREAST CANCER
     Dosage: LAST DOSE GIVEN BY REPORTING PHYSICIAN ON 24 JAN 2005
     Route: 058
     Dates: start: 20030101

REACTIONS (3)
  - DYSPNOEA [None]
  - RASH [None]
  - RASH GENERALISED [None]
